FAERS Safety Report 15594254 (Version 1)
Quarter: 2018Q4

REPORT INFORMATION
  Report Type: Spontaneous
  Country: US (occurrence: US)
  Receive Date: 20181107
  Receipt Date: 20181107
  Transmission Date: 20190205
  Serious: Yes (Hospitalization)
  Sender: FDA-Public Use
  Company Number: None

PATIENT
  Age: 54 Year
  Sex: Male

DRUGS (4)
  1. HUMIRA [Suspect]
     Active Substance: ADALIMUMAB
     Indication: RHEUMATOID ARTHRITIS
     Dates: start: 20151118
  2. A-S PLS SINU CAP [Concomitant]
  3. ETODOLAC. [Concomitant]
     Active Substance: ETODOLAC
  4. ROBITUSSIN (GUAIFENESIN) [Concomitant]
     Active Substance: GUAIFENESIN

REACTIONS (4)
  - Myocardial infarction [None]
  - Therapy change [None]
  - Drug ineffective [None]
  - Rheumatoid arthritis [None]
